FAERS Safety Report 16264030 (Version 3)
Quarter: 2019Q2

REPORT INFORMATION
  Report Type: Spontaneous
  Country: KR (occurrence: KR)
  Receive Date: 20190502
  Receipt Date: 20190619
  Transmission Date: 20190711
  Serious: Yes (Other)
  Sender: FDA-Public Use
  Company Number: KR-009507513-1904KOR013165

PATIENT
  Sex: Female

DRUGS (17)
  1. KEYTRUDA [Suspect]
     Active Substance: PEMBROLIZUMAB
     Dosage: UNK
     Dates: start: 20190606
  2. DULCOLAX S [Concomitant]
     Dosage: UNK
     Dates: start: 20190423
  3. INSTILLAGEL [Concomitant]
     Active Substance: CHLORHEXIDINE GLUCONATE\LIDOCAINE HYDROCHLORIDE
     Dosage: UNK
     Dates: start: 20190423
  4. SODIUM CHLORIDE. [Concomitant]
     Active Substance: SODIUM CHLORIDE
     Dosage: UNK; JW NS INJ 50 ML BAG
     Dates: start: 20190423
  5. SODIUM CHLORIDE. [Concomitant]
     Active Substance: SODIUM CHLORIDE
     Dosage: UNK; JW NS INJ BAG
     Dates: start: 20190423
  6. KEYTRUDA [Suspect]
     Active Substance: PEMBROLIZUMAB
     Indication: CERVIX CARCINOMA
     Dosage: UNK
     Dates: start: 20190423
  7. KEYTRUDA [Suspect]
     Active Substance: PEMBROLIZUMAB
     Dosage: UNK
     Dates: start: 20190515
  8. DUPHALAC [Concomitant]
     Active Substance: LACTULOSE
     Dosage: UNK
     Route: 048
     Dates: start: 20190423
  9. IOPAMIRO [Concomitant]
     Active Substance: IOPAMIDOL
     Dosage: UNK; IOPAMIRO INJ 370
     Dates: start: 20190423
  10. RESOLOR [Concomitant]
     Active Substance: PRUCALOPRIDE SUCCINATE
     Dosage: UNK
     Route: 048
     Dates: start: 20190423
  11. SODIUM CHLORIDE. [Concomitant]
     Active Substance: SODIUM CHLORIDE
     Dosage: UNK; JW NS INJ 1000 ML BAG
     Dates: start: 20190423
  12. MAGO [Concomitant]
     Dosage: UNK
     Route: 048
     Dates: start: 20190423
  13. MEPERIDINE HYDROCHLORIDE. [Concomitant]
     Active Substance: MEPERIDINE HYDROCHLORIDE
     Dosage: UNK; PETHIDINE HCL HANA INJ
     Dates: start: 20190423
  14. DUROGESIC [Concomitant]
     Active Substance: FENTANYL
     Dosage: STRENGTH: 12 MCG/H 5.25 CM2
     Dates: start: 20190422
  15. DUROGESIC [Concomitant]
     Active Substance: FENTANYL
     Dosage: STRENGTH: 12 MCG/H 5.25 CM2
     Dates: start: 20190423
  16. CETAMADOL [Concomitant]
     Dosage: UNK
     Route: 048
     Dates: start: 20190423
  17. CIPROFLOXACIN. [Concomitant]
     Active Substance: CIPROFLOXACIN
     Dosage: UNK; CHOONGWAE CIPROFLOXACIN INJ
     Dates: start: 20190423

REACTIONS (2)
  - Product use in unapproved indication [Unknown]
  - Ureteral stent insertion [Unknown]

NARRATIVE: CASE EVENT DATE: 20190423
